FAERS Safety Report 17483679 (Version 1)
Quarter: 2020Q1

REPORT INFORMATION
  Report Type: Spontaneous
  Country: US (occurrence: US)
  Receive Date: 20200229
  Receipt Date: 20200229
  Transmission Date: 20200409
  Serious: No
  Sender: FDA-Public Use
  Company Number: None

PATIENT
  Age: 71 Year
  Sex: Male
  Weight: 61.2 kg

DRUGS (1)
  1. VALSARTAN TABLETS, USP 40 MG [Suspect]
     Active Substance: VALSARTAN
     Indication: BLOOD PRESSURE MEASUREMENT
     Dosage: ?          QUANTITY:1 TABLET(S);?
     Route: 048
     Dates: start: 20200209, end: 20200223

REACTIONS (3)
  - Product quality issue [None]
  - Wrong dose [None]
  - Blood pressure increased [None]

NARRATIVE: CASE EVENT DATE: 20200209
